FAERS Safety Report 17042847 (Version 1)
Quarter: 2019Q4

REPORT INFORMATION
  Report Type: Spontaneous
  Country: US (occurrence: US)
  Receive Date: 20191118
  Receipt Date: 20191118
  Transmission Date: 20200122
  Serious: No
  Sender: FDA-Public Use
  Company Number: US-TEVA-2019-US-1139110

PATIENT
  Sex: Female

DRUGS (1)
  1. LIDOCAINE PATCH ACTAVIS [Suspect]
     Active Substance: LIDOCAINE
     Route: 062
     Dates: start: 2011

REACTIONS (1)
  - Dermatitis allergic [Unknown]
